FAERS Safety Report 15507353 (Version 1)
Quarter: 2018Q4

REPORT INFORMATION
  Report Type: Spontaneous
  Country: CN (occurrence: CN)
  Receive Date: 20181016
  Receipt Date: 20181016
  Transmission Date: 20190205
  Serious: Yes (Hospitalization, Other)
  Sender: FDA-Public Use
  Company Number: CN-SA-2018SA282297

PATIENT
  Age: 50 Year
  Sex: Female
  Weight: 41 kg

DRUGS (14)
  1. FLUOROURACIL. [Suspect]
     Active Substance: FLUOROURACIL
     Indication: GASTRIC CANCER
     Dosage: 3600 MG, QD
     Route: 041
     Dates: start: 20180720, end: 20180720
  2. CELEBREX [Concomitant]
     Active Substance: CELECOXIB
     Indication: ANALGESIC THERAPY
     Dosage: 200 MG, QD
     Route: 048
     Dates: start: 20180718, end: 20180725
  3. SODIUM CHLORIDE. [Concomitant]
     Active Substance: SODIUM CHLORIDE
     Indication: PROPHYLAXIS
     Dosage: 100 ML, QD
     Route: 041
     Dates: start: 20180719, end: 20180725
  4. SODIUM CHLORIDE. [Concomitant]
     Active Substance: SODIUM CHLORIDE
     Dosage: 110 ML, QD
     Route: 041
     Dates: start: 20180720, end: 20180720
  5. SODIUM CHLORIDE. [Concomitant]
     Active Substance: SODIUM CHLORIDE
     Dosage: 400 ML, QD
     Route: 041
     Dates: start: 20180718, end: 20180725
  6. SODIUM CHLORIDE. [Concomitant]
     Active Substance: SODIUM CHLORIDE
     Dosage: 250 ML, QD
     Route: 041
     Dates: start: 20180720, end: 20180720
  7. UBENIMEX [Concomitant]
     Active Substance: UBENIMEX
     Dosage: 10 MG, TID
     Route: 048
     Dates: start: 20180718, end: 20180719
  8. DEXAMETHASONE ACETATE [Concomitant]
     Active Substance: DEXAMETHASONE ACETATE
     Indication: PROPHYLAXIS
     Dosage: 8.25 MG, BID
     Route: 048
     Dates: start: 20180719, end: 20180721
  9. MEGESTROL ACETATE. [Concomitant]
     Active Substance: MEGESTROL ACETATE
     Indication: PROPHYLAXIS
     Dosage: 160 MG, QD
     Route: 048
     Dates: start: 20180718, end: 20180725
  10. GLUCOSE INJECTION [Concomitant]
     Active Substance: DEXTROSE
     Dosage: 250 ML, QD
     Route: 041
     Dates: start: 20180720, end: 20180720
  11. SODIUM CHLORIDE. [Concomitant]
     Active Substance: SODIUM CHLORIDE
     Dosage: 100 ML, QD
     Route: 041
     Dates: start: 20180718, end: 20180725
  12. ELOXATIN [Suspect]
     Active Substance: OXALIPLATIN
     Indication: GASTRIC CANCER
     Dosage: 200 MG, QD
     Route: 041
     Dates: start: 20180720, end: 20180720
  13. GLUCOSE INJECTION [Concomitant]
     Active Substance: DEXTROSE
     Dosage: 250 ML, QD
     Route: 041
     Dates: start: 20180718, end: 20180725
  14. TAXOTERE [Suspect]
     Active Substance: DOCETAXEL
     Indication: GASTRIC CANCER
     Dosage: 110 MG, QD
     Route: 041
     Dates: start: 20180720, end: 20180720

REACTIONS (2)
  - Cytopenia [Recovering/Resolving]
  - Diarrhoea [Recovering/Resolving]

NARRATIVE: CASE EVENT DATE: 20180728
